FAERS Safety Report 9877825 (Version 1)
Quarter: 2014Q1

REPORT INFORMATION
  Report Type: Spontaneous
  Country: US (occurrence: US)
  Receive Date: 20140206
  Receipt Date: 20140206
  Transmission Date: 20141002
  Serious: Yes (Hospitalization)
  Sender: FDA-Public Use
  Company Number: US-NOVOPROD-399118

PATIENT
  Age: 72 Year
  Sex: Female
  Weight: 80.73 kg

DRUGS (3)
  1. LEVEMIR FLEXPEN [Suspect]
     Indication: TYPE 2 DIABETES MELLITUS
     Dosage: 40 UNITS DAILY
     Route: 058
     Dates: start: 20100801
  2. DIOVAN [Concomitant]
     Indication: HYPERTENSION
     Route: 048
  3. HYDROCHLOORTHIAZIDE [Concomitant]
     Indication: HYPERTENSION
     Route: 048

REACTIONS (3)
  - Rash [Not Recovered/Not Resolved]
  - Blood pressure increased [Not Recovered/Not Resolved]
  - Blood glucose increased [Not Recovered/Not Resolved]
